FAERS Safety Report 16469211 (Version 1)
Quarter: 2019Q3

REPORT INFORMATION
  Report Type: Spontaneous
  Country: US (occurrence: US)
  Receive Date: 20190621
  Receipt Date: 20190621
  Transmission Date: 20191004
  Serious: Yes (Other)
  Sender: FDA-Public Use
  Company Number: None

PATIENT
  Age: 49 Year
  Sex: Female

DRUGS (1)
  1. SOMADERM GEL [Suspect]
     Active Substance: HOMEOPATHICS
     Indication: ROUTINE HEALTH MAINTENANCE

REACTIONS (2)
  - Thyroid disorder [None]
  - Blood thyroid stimulating hormone increased [None]

NARRATIVE: CASE EVENT DATE: 20190123
